FAERS Safety Report 5562909-5 (Version None)
Quarter: 2007Q4

REPORT INFORMATION
  Report Type: 
  Country: None (occurrence: None)
  Receive Date: 20071217
  Receipt Date: 20071203
  Transmission Date: 20080405
  Serious: Yes (Hospitalization, Disabling)
  Sender: FDA-Public Use
  Company Number: FR-AMGEN-US232347

PATIENT
  Sex: Female

DRUGS (3)
  1. ENBREL [Suspect]
     Indication: ANKYLOSING SPONDYLITIS
     Dosage: LYOPHILIZED (25 MG 2 TIMES WEEKLY)
     Route: 058
     Dates: start: 20040901, end: 20070531
  2. KETOPROFEN [Concomitant]
     Route: 048
     Dates: start: 20040901, end: 20041101
  3. KETOPROFEN [Concomitant]
     Dosage: UNKNOWN
     Dates: start: 20070101

REACTIONS (1)
  - MULTIPLE SCLEROSIS [None]
